FAERS Safety Report 8359771-4 (Version None)
Quarter: 2012Q2

REPORT INFORMATION
  Report Type: 
  Country: None (occurrence: None)
  Receive Date: 20120515
  Receipt Date: 20120508
  Transmission Date: 20120825
  Serious: Yes (Other)
  Sender: FDA-Public Use
  Company Number: PHHY2012MX040544

PATIENT
  Sex: Male

DRUGS (1)
  1. EXFORGE HCT [Suspect]
     Indication: HYPERTENSION
     Dosage: 1 DF (320/10/25MG) QD
     Dates: start: 20120428

REACTIONS (4)
  - DEVICE RELATED INFECTION [None]
  - DRUG INEFFECTIVE [None]
  - VIRAL INFECTION [None]
  - BLOOD PRESSURE INADEQUATELY CONTROLLED [None]
